FAERS Safety Report 15194138 (Version 1)
Quarter: 2018Q3

REPORT INFORMATION
  Report Type: Spontaneous
  Country: CA (occurrence: CA)
  Receive Date: 20180725
  Receipt Date: 20180725
  Transmission Date: 20181010
  Serious: Yes (Other)
  Sender: FDA-Public Use
  Company Number: CA-MYLANLABS-2018M1056818

PATIENT
  Age: 25 Year
  Sex: Male

DRUGS (1)
  1. EPINEPHRINE. [Suspect]
     Active Substance: EPINEPHRINE
     Indication: ANAPHYLACTIC REACTION
     Dosage: 0.2 MG OF 1:1000
     Route: 050

REACTIONS (6)
  - Headache [Recovered/Resolved]
  - Anxiety [Recovered/Resolved]
  - Conduction disorder [Recovered/Resolved]
  - Dizziness [Recovered/Resolved]
  - Arrhythmia [Recovered/Resolved]
  - Hypertension [Recovered/Resolved]
